FAERS Safety Report 9151963 (Version 1)
Quarter: 2013Q1

REPORT INFORMATION
  Report Type: Spontaneous
  Country: US (occurrence: US)
  Receive Date: 20130308
  Receipt Date: 20130308
  Transmission Date: 20140127
  Serious: No
  Sender: FDA-Public Use
  Company Number: US-GLAXOSMITHKLINE-A1003810A

PATIENT
  Age: 58 Year
  Sex: Female

DRUGS (1)
  1. NICORETTE [Suspect]
     Indication: STRESS
     Route: 002

REACTIONS (6)
  - Dyspnoea [Unknown]
  - Dysphagia [Unknown]
  - Rash [Unknown]
  - Drug administration error [Unknown]
  - Overdose [Unknown]
  - Blood pressure increased [Unknown]
